FAERS Safety Report 14398357 (Version 1)
Quarter: 2018Q1

REPORT INFORMATION
  Report Type: Spontaneous
  Country: US (occurrence: US)
  Receive Date: 20180116
  Receipt Date: 20180116
  Transmission Date: 20180509
  Serious: No
  Sender: FDA-Public Use
  Company Number: US-GLAXOSMITHKLINE-US2018005929

PATIENT
  Age: 57 Year
  Sex: Female

DRUGS (1)
  1. FLONASE [Suspect]
     Active Substance: FLUTICASONE PROPIONATE
     Indication: SINUS DISORDER
     Dosage: SPRAYED TWO SPRAYS IN EACH NOSTRIL
     Dates: start: 20180110, end: 20180110

REACTIONS (3)
  - Product use in unapproved indication [Unknown]
  - Expired product administered [Unknown]
  - Chest pain [Unknown]
